FAERS Safety Report 17734472 (Version 1)
Quarter: 2020Q2

REPORT INFORMATION
  Report Type: Spontaneous
  Country: TR (occurrence: TR)
  Receive Date: 20200501
  Receipt Date: 20200501
  Transmission Date: 20200714
  Serious: Yes (Hospitalization)
  Sender: FDA-Public Use
  Company Number: TR-NOVOPROD-725495

PATIENT
  Sex: Female
  Weight: 2.88 kg

DRUGS (4)
  1. INSULATARD HM PENFILL [Suspect]
     Active Substance: INSULIN NOS
     Indication: GESTATIONAL DIABETES
     Dosage: 20 IU
     Route: 064
     Dates: start: 20191014
  2. HUMULIN R [Concomitant]
     Active Substance: INSULIN HUMAN
     Indication: GESTATIONAL DIABETES
     Dosage: 34 IU
     Route: 064
     Dates: start: 20191007
  3. MAGNESIUM [Concomitant]
     Active Substance: MAGNESIUM
     Indication: MINERAL SUPPLEMENTATION
     Dosage: UNK
     Route: 064
     Dates: start: 20190916
  4. DECAVIT [VITAMINS NOS] [Concomitant]
     Indication: VITAMIN SUPPLEMENTATION
     Dosage: UNK BID
     Route: 064
     Dates: start: 20190916

REACTIONS (4)
  - Foetal exposure during pregnancy [Recovered/Resolved]
  - Premature baby [Unknown]
  - Respiratory disorder neonatal [Recovered/Resolved]
  - Neonatal infection [Unknown]

NARRATIVE: CASE EVENT DATE: 20191014
